FAERS Safety Report 6080110-6 (Version None)
Quarter: 2009Q1

REPORT INFORMATION
  Report Type: 
  Country: None (occurrence: None)
  Receive Date: 20090217
  Receipt Date: 20081203
  Transmission Date: 20090719
  Serious: Yes (Other)
  Sender: FDA-Public Use
  Company Number: US-PFIZER INC-2008096553

PATIENT
  Sex: Male
  Weight: 97.5 kg

DRUGS (9)
  1. CHANTIX [Suspect]
     Indication: SMOKING CESSATION THERAPY
     Dosage: UNK
     Dates: start: 20080601
  2. SYNTHROID [Concomitant]
     Indication: THYROID DISORDER
  3. COPAXONE [Concomitant]
     Indication: MULTIPLE SCLEROSIS
  4. DEPAKOTE [Concomitant]
  5. WELLBUTRIN [Concomitant]
  6. OXYBUTYNIN CHLORIDE [Concomitant]
  7. VESICARE [Concomitant]
     Indication: URINARY INCONTINENCE
  8. VITAMIN D [Concomitant]
  9. COD-LIVER OIL [Concomitant]

REACTIONS (1)
  - BLOOD PRESSURE INCREASED [None]
